FAERS Safety Report 8172775 (Version 10)
Quarter: 2015Q1

REPORT INFORMATION
  Report Type: Spontaneous
  Country: US (occurrence: US)
  Receive Date: 20111007
  Receipt Date: 20150305
  Transmission Date: 20150721
  Serious: Yes (Hospitalization, Other)
  Sender: FDA-Public Use
  Company Number: US-GLAXOSMITHKLINE-A0947827A

PATIENT
  Age: 61 Year
  Sex: Female

DRUGS (7)
  1. FLOLAN [Suspect]
     Active Substance: EPOPROSTENOL SODIUM
     Dosage: UNK
     Dates: start: 19991001
  2. WARFARIN [Concomitant]
     Active Substance: WARFARIN
  3. COUMADIN [Concomitant]
     Active Substance: WARFARIN SODIUM
  4. FLOLAN [Suspect]
     Active Substance: EPOPROSTENOL SODIUM
     Dosage: UNK
     Dates: start: 19991001
  5. REVATIO [Concomitant]
     Active Substance: SILDENAFIL CITRATE
  6. FLOLAN [Suspect]
     Active Substance: EPOPROSTENOL SODIUM
     Dosage: 36 NG/KG/MIN CONTINUOUSLY; CONCENTRATION: 30,000 NG/ML; PUMP RATE: 78 ML/DAY; VIAL STRENGTH: 1.5 MG
     Route: 042
     Dates: start: 19991022
  7. FLOLAN [Suspect]
     Active Substance: EPOPROSTENOL SODIUM
     Indication: PULMONARY ARTERIAL HYPERTENSION
     Dosage: 36 NG/KG/MINUTE CONTINUOUSLY; PUMP RATE: 78 ML/DAY; VIAL STRENGTH: 1.5 MG;CONCENTRATION 30,000 NG/ML
     Route: 042
     Dates: start: 19991001

REACTIONS (10)
  - Infection [Recovered/Resolved]
  - Injection site pruritus [Unknown]
  - Breast cancer [Recovered/Resolved]
  - Injection site dryness [Recovered/Resolved]
  - Eye operation [Recovered/Resolved]
  - Adverse event [Recovered/Resolved]
  - Breast lump removal [Recovered/Resolved]
  - Radiotherapy [Unknown]
  - Pruritus [Not Recovered/Not Resolved]
  - Skin irritation [Recovered/Resolved]

NARRATIVE: CASE EVENT DATE: 20120701
